FAERS Safety Report 9162172 (Version 1)
Quarter: 2013Q1

REPORT INFORMATION
  Report Type: Spontaneous
  Country: GB (occurrence: GB)
  Receive Date: 20130314
  Receipt Date: 20130314
  Transmission Date: 20140127
  Serious: Yes (Other)
  Sender: FDA-Public Use
  Company Number: PHFR2013GB001579

PATIENT
  Age: 32 Year
  Sex: Male

DRUGS (6)
  1. TEGRETOL [Suspect]
     Dosage: 600 MG, BID
     Route: 048
     Dates: start: 2004
  2. TEGRETOL [Suspect]
     Dosage: UNK UKN, UNK
     Route: 048
  3. VIMPAT [Suspect]
     Indication: PARTIAL SEIZURES
     Dosage: UNK UKN, UNK
     Route: 048
  4. VIMPAT [Suspect]
     Dosage: 200 UKN, BID
     Route: 048
     Dates: start: 201203
  5. PREGABALIN [Concomitant]
     Indication: EPILEPSY
     Dosage: 350 UKN, BID
     Route: 048
     Dates: start: 200512
  6. CLOBAZAM [Concomitant]
     Dosage: 10 UKN, TID
     Route: 048
     Dates: start: 2006

REACTIONS (3)
  - Convulsion [Not Recovered/Not Resolved]
  - Excoriation [Unknown]
  - Somnolence [Recovering/Resolving]
